FAERS Safety Report 9208699 (Version 1)
Quarter: 2013Q1

REPORT INFORMATION
  Report Type: Spontaneous
  Country: US (occurrence: None)
  Receive Date: 20130129
  Receipt Date: 20130129
  Transmission Date: 20140127
  Serious: No
  Sender: FDA-Public Use
  Company Number: TPA2013A00954

PATIENT
  Sex: Male

DRUGS (2)
  1. EDARBI [Suspect]
     Indication: HYPERTENSION
     Route: 048
  2. CHLORTHALIDONE [Suspect]
     Indication: HYPERTENSION
     Dosage: 25MG, 1 IN 1 D, PER ORAL
     Route: 048

REACTIONS (1)
  - Renal failure [None]
